FAERS Safety Report 9562720 (Version 1)
Quarter: 2013Q3

REPORT INFORMATION
  Report Type: Spontaneous
  Country: US (occurrence: US)
  Receive Date: 20130927
  Receipt Date: 20130927
  Transmission Date: 20140515
  Serious: No
  Sender: FDA-Public Use
  Company Number: US-BAXTER-2013BAX037310

PATIENT
  Sex: 0

DRUGS (1)
  1. 0.9% SODIUM CHLORIDE IRRIGATION [Suspect]
     Indication: PRODUCT USED FOR UNKNOWN INDICATION

REACTIONS (2)
  - Product contamination physical [Unknown]
  - Intercepted medication error [Recovered/Resolved]
